FAERS Safety Report 6608664-9 (Version None)
Quarter: 2010Q1

REPORT INFORMATION
  Report Type: 
  Country: None (occurrence: None)
  Receive Date: 20100226
  Receipt Date: 20100226
  Transmission Date: 20100710
  Serious: No
  Sender: FDA-Public Use
  Company Number: None

PATIENT
  Age: 50 Year
  Sex: Male
  Weight: 76.6579 kg

DRUGS (1)
  1. CLOZAPINE [Suspect]
     Dosage: PO
     Route: 048

REACTIONS (1)
  - WEIGHT INCREASED [None]
